FAERS Safety Report 14401890 (Version 4)
Quarter: 2018Q1

REPORT INFORMATION
  Report Type: Report from Study
  Country: US (occurrence: US)
  Receive Date: 20180117
  Receipt Date: 20180316
  Transmission Date: 20180509
  Serious: Yes (Hospitalization, Other)
  Sender: FDA-Public Use
  Company Number: US-BAYER-2017-141230

PATIENT
  Age: 69 Year
  Sex: Female
  Weight: 117.91 kg

DRUGS (13)
  1. ADEMPAS [Suspect]
     Active Substance: RIOCIGUAT
     Indication: PULMONARY HYPERTENSION
     Dosage: UNK
     Dates: start: 20170626
  2. ADEMPAS [Suspect]
     Active Substance: RIOCIGUAT
     Indication: PULMONARY ARTERIAL HYPERTENSION
     Dosage: 1 MG, TID
     Route: 048
  3. SILDENAFIL CITRATE. [Concomitant]
     Active Substance: SILDENAFIL CITRATE
     Dosage: UNK
  4. XARELTO [Concomitant]
     Active Substance: RIVAROXABAN
     Dosage: UNK
  5. ADEMPAS [Suspect]
     Active Substance: RIOCIGUAT
     Indication: PULMONARY HYPERTENSION
     Dosage: 2 MG, TID
     Route: 048
  6. ADEMPAS [Suspect]
     Active Substance: RIOCIGUAT
     Indication: PULMONARY HYPERTENSION
     Dosage: 2.5 MG, TID
     Route: 048
  7. ORENITRAM [Concomitant]
     Active Substance: TREPROSTINIL
     Dosage: 3.375 MG, TID
     Route: 048
  8. ADEMPAS [Suspect]
     Active Substance: RIOCIGUAT
     Indication: PULMONARY HYPERTENSION
     Dosage: 1.5 MG, TID
     Route: 048
  9. ADEMPAS [Suspect]
     Active Substance: RIOCIGUAT
     Indication: PULMONARY HYPERTENSION
     Dosage: 2 MG, TID
     Route: 048
  10. AMLODIPINE [Concomitant]
     Active Substance: AMLODIPINE BESYLATE
     Dosage: UNK
  11. ADEMPAS [Suspect]
     Active Substance: RIOCIGUAT
     Indication: PULMONARY HYPERTENSION
     Dosage: 2 MG, TID
     Route: 048
  12. ORENITRAM [Concomitant]
     Active Substance: TREPROSTINIL
     Dosage: 2 MG, TID
     Route: 048
  13. VANCOMYCIN [Concomitant]
     Active Substance: VANCOMYCIN
     Dosage: UNK

REACTIONS (28)
  - Hospitalisation [Unknown]
  - Vomiting [Unknown]
  - Abdominal pain [Unknown]
  - Rehabilitation therapy [None]
  - Nausea [Unknown]
  - Pain in jaw [Unknown]
  - Malaise [Unknown]
  - Pain [Unknown]
  - Ascites [Not Recovered/Not Resolved]
  - Peritoneal dialysis [None]
  - Influenza [Recovering/Resolving]
  - Orthopnoea [None]
  - Diarrhoea [None]
  - Headache [Not Recovered/Not Resolved]
  - Dyspnoea exertional [None]
  - Abdominal pain [None]
  - Fluid overload [None]
  - Dyspnoea [None]
  - Weight increased [None]
  - Dyspnoea [Unknown]
  - Joint swelling [None]
  - Intentional product use issue [None]
  - Fatigue [None]
  - Dysuria [Not Recovered/Not Resolved]
  - Dizziness [Unknown]
  - Asthenia [Unknown]
  - Weight increased [None]
  - Vomiting [Unknown]

NARRATIVE: CASE EVENT DATE: 2017
